FAERS Safety Report 8892451 (Version 1)
Quarter: 2012Q4

REPORT INFORMATION
  Report Type: Report from Study
  Country: FR (occurrence: FR)
  Receive Date: 20121107
  Receipt Date: 20121107
  Transmission Date: 20130627
  Serious: Yes (Hospitalization)
  Sender: FDA-Public Use
  Company Number: FR-GLAXOSMITHKLINE-B0842377A

PATIENT
  Age: 36 Year
  Sex: Female

DRUGS (4)
  1. LAPATINIB [Suspect]
     Indication: BREAST CANCER
     Dosage: 750MG Per day
     Route: 048
     Dates: start: 20121002, end: 20121015
  2. BKM120 [Suspect]
     Indication: BREAST CANCER
     Dosage: 60MG Per day
     Route: 048
     Dates: start: 20121002, end: 20121015
  3. ZELITREX [Concomitant]
     Dates: start: 20121010, end: 20121014
  4. DOLIPRANE [Concomitant]
     Dates: start: 20121010, end: 20121014

REACTIONS (1)
  - Hepatocellular injury [Recovered/Resolved]
